FAERS Safety Report 7071719-1 (Version None)
Quarter: 2010Q4

REPORT INFORMATION
  Report Type: 
  Country: None (occurrence: None)
  Receive Date: 20101029
  Receipt Date: 20091208
  Transmission Date: 20110411
  Serious: Yes (Other)
  Sender: FDA-Public Use
  Company Number: A0811585A

PATIENT
  Age: 49 Year
  Sex: Female

DRUGS (7)
  1. ADVAIR DISKUS 100/50 [Suspect]
     Indication: ASTHMA
     Dosage: 1PUFF TWICE PER DAY
     Route: 055
  2. VICODIN [Concomitant]
  3. SOMA [Concomitant]
  4. TOPROL-XL [Concomitant]
  5. ZIAC [Concomitant]
  6. NAPROXEN [Concomitant]
  7. UNKNOWN [Concomitant]

REACTIONS (5)
  - ADVERSE EVENT [None]
  - ASTHMA [None]
  - CHEST DISCOMFORT [None]
  - COUGH [None]
  - DRUG ADMINISTRATION ERROR [None]
